FAERS Safety Report 9038436 (Version 1)
Quarter: 2013Q1

REPORT INFORMATION
  Report Type: Report from Study
  Country: US (occurrence: US)
  Receive Date: 20130130
  Receipt Date: 20130130
  Transmission Date: 20140127
  Serious: No
  Sender: FDA-Public Use
  Company Number: US-ABBOTT-12P-163-0950717-00

PATIENT
  Age: 55 Year
  Sex: Female

DRUGS (17)
  1. HUMIRA 40 MG/0.8 ML PEN [Suspect]
     Indication: CROHN^S DISEASE
     Dosage: INITIAL DOSE
     Dates: start: 20120616
  2. LABETALOL [Concomitant]
     Indication: HYPERTENSION
  3. AMLODIPINE [Concomitant]
     Indication: HYPERTENSION
     Dosage: DAILY
  4. PREDNISONE [Concomitant]
     Indication: CROHN^S DISEASE
  5. PENTASA [Concomitant]
     Indication: CROHN^S DISEASE
  6. NASACORT [Concomitant]
     Indication: SEASONAL ALLERGY
  7. NASACORT [Concomitant]
     Indication: MYCOTIC ALLERGY
  8. NASACORT [Concomitant]
     Indication: HOUSE DUST ALLERGY
  9. NASACORT [Concomitant]
     Indication: ALLERGY TO ANIMAL
  10. OMEPRAZOLE [Concomitant]
     Indication: GASTROOESOPHAGEAL REFLUX DISEASE
  11. MELOXICAM [Concomitant]
     Indication: RHEUMATOID ARTHRITIS
     Dosage: DAILY
  12. KLOR-CON M20 [Concomitant]
     Indication: BLOOD POTASSIUM DECREASED
  13. GLIPIZIDE [Concomitant]
     Indication: TYPE 2 DIABETES MELLITUS
  14. METFORMIN [Concomitant]
     Indication: TYPE 2 DIABETES MELLITUS
  15. NOVOLOG [Concomitant]
     Indication: TYPE 2 DIABETES MELLITUS
  16. SIMVASTATIN [Concomitant]
     Indication: BLOOD CHOLESTEROL INCREASED
     Dosage: DAILY
  17. LISINOPRIL [Concomitant]
     Indication: HYPERTENSION
     Dosage: DAILY

REACTIONS (1)
  - Vision blurred [Recovering/Resolving]
